FAERS Safety Report 4453518-X (Version None)
Quarter: 2004Q3

REPORT INFORMATION
  Report Type: 
  Country: None (occurrence: None)
  Receive Date: 20040920
  Receipt Date: 20040909
  Transmission Date: 20050211
  Serious: Yes (Hospitalization, Other)
  Sender: FDA-Public Use
  Company Number: JP-JNJFOC-20040403606

PATIENT
  Sex: Female
  Weight: 50 kg

DRUGS (11)
  1. REMICADE [Suspect]
     Route: 041
  2. REMICADE [Suspect]
     Route: 041
  3. REMICADE [Suspect]
     Route: 041
  4. REMICADE [Suspect]
     Route: 041
  5. REMICADE [Suspect]
     Indication: RHEUMATOID ARTHRITIS
     Route: 041
  6. METHOTREXATE [Suspect]
     Route: 049
  7. METHOTREXATE [Suspect]
     Route: 049
  8. METHOTREXATE [Suspect]
     Indication: RHEUMATOID ARTHRITIS
     Route: 049
  9. CYCLOSPORINE [Suspect]
     Indication: DRUG USE FOR UNKNOWN INDICATION
     Route: 049
  10. DEXAMETHASONE [Suspect]
     Indication: RHEUMATOID ARTHRITIS
     Dosage: 9 MG TAPER TO 2 MG AT THE TIME OF THE EVENT.
     Route: 049
  11. CELLCEPT [Suspect]
     Indication: DRUG USE FOR UNKNOWN INDICATION
     Route: 049

REACTIONS (2)
  - ENCEPHALITIS HERPES [None]
  - SPEECH DISORDER [None]
